FAERS Safety Report 20654819 (Version 1)
Quarter: 2022Q1

REPORT INFORMATION
  Report Type: Spontaneous
  Country: US (occurrence: None)
  Receive Date: 20220330
  Receipt Date: 20220330
  Transmission Date: 20220424
  Serious: Yes (Hospitalization)
  Sender: FDA-Public Use
  Company Number: None

PATIENT
  Age: 58 Year
  Sex: Male
  Weight: 102.4 kg

DRUGS (15)
  1. DEXMEDETOMIDINE [Suspect]
     Active Substance: DEXMEDETOMIDINE
     Indication: Alcohol withdrawal syndrome
     Dosage: OTHER FREQUENCY : MCG/KG/HR;?
     Route: 041
     Dates: start: 20220118, end: 20220119
  2. Diazepam (occasional one time doses) [Concomitant]
     Dates: start: 20220118, end: 20220122
  3. LORAZEPAM [Concomitant]
     Active Substance: LORAZEPAM
     Dates: start: 20220115, end: 20220118
  4. LIBRIUM [Concomitant]
     Active Substance: CHLORDIAZEPOXIDE HYDROCHLORIDE
     Dates: start: 20220118, end: 20220118
  5. AMLODIPINE [Concomitant]
     Active Substance: AMLODIPINE BESYLATE
     Dates: start: 20220115, end: 20220118
  6. ATORVASTATIN [Concomitant]
     Active Substance: ATORVASTATIN
     Dates: start: 20220115, end: 20220120
  7. CALCIUM\VITAMIN D [Concomitant]
     Active Substance: CALCIUM\VITAMIN D
     Dates: start: 20220116, end: 20220119
  8. FAMOTIDINE [Concomitant]
     Active Substance: FAMOTIDINE
     Dates: start: 20220116, end: 20220118
  9. FOLIC ACID [Concomitant]
     Active Substance: FOLIC ACID
     Dates: start: 20220117, end: 20220126
  10. LEVOTHYROXINE [Concomitant]
     Active Substance: LEVOTHYROXINE
     Dates: start: 20220116, end: 20220121
  11. METOPROLOL [Concomitant]
     Active Substance: METOPROLOL
     Dates: start: 20220116, end: 20220118
  12. VITAMINS [Concomitant]
     Active Substance: VITAMINS
     Dates: start: 20220116, end: 20220126
  13. PAROXETINE [Concomitant]
     Active Substance: PAROXETINE
     Dates: start: 20220116, end: 20220125
  14. THIAMINE [Concomitant]
     Active Substance: THIAMINE
     Dates: start: 20220116, end: 20220326
  15. TIZANIDINE [Concomitant]
     Active Substance: TIZANIDINE
     Dates: start: 20220116, end: 20220118

REACTIONS (1)
  - Oxygen saturation decreased [None]

NARRATIVE: CASE EVENT DATE: 20220118
